FAERS Safety Report 4651528-0 (Version None)
Quarter: 2005Q2

REPORT INFORMATION
  Report Type: 
  Country: None (occurrence: None)
  Receive Date: 20050404
  Receipt Date: 20041109
  Transmission Date: 20051028
  Serious: No
  Sender: FDA-Public Use
  Company Number: USA041183686

PATIENT
  Age: 43 Year
  Sex: Male

DRUGS (5)
  1. CYMBALTA [Suspect]
     Indication: PAIN
     Dosage: 60 MG
     Dates: start: 20041106, end: 20041106
  2. PROZAC [Suspect]
  3. OXYCODONE HCL [Concomitant]
  4. NEURONTIN (GABAPENTIN PFIZER) [Concomitant]
  5. CLONIDINE [Concomitant]

REACTIONS (7)
  - EMOTIONAL DISTRESS [None]
  - ESSENTIAL TREMOR [None]
  - FEELING ABNORMAL [None]
  - NAUSEA [None]
  - NIGHT SWEATS [None]
  - TINNITUS [None]
  - VISION BLURRED [None]
